FAERS Safety Report 4557353-3 (Version None)
Quarter: 2005Q1

REPORT INFORMATION
  Report Type: 
  Country: None (occurrence: None)
  Receive Date: 20050119
  Receipt Date: 20050119
  Transmission Date: 20050727
  Serious: Yes (Hospitalization)
  Sender: FDA-Public Use
  Company Number: None

PATIENT
  Sex: Female
  Weight: 85.8 kg

DRUGS (1)
  1. CELEBREX [Suspect]
     Indication: STEVENS-JOHNSON SYNDROME

REACTIONS (2)
  - DYSPNOEA [None]
  - RASH [None]
